FAERS Safety Report 16209891 (Version 3)
Quarter: 2019Q2

REPORT INFORMATION
  Report Type: Spontaneous
  Country: ES (occurrence: ES)
  Receive Date: 20190417
  Receipt Date: 20190506
  Transmission Date: 20190711
  Serious: Yes (Other)
  Sender: FDA-Public Use
  Company Number: ES-ALLERGAN-1907131US

PATIENT
  Sex: Female

DRUGS (2)
  1. OSTEOPOR [Concomitant]
     Dosage: 2 DF, BID
  2. PRED FORTE [Suspect]
     Active Substance: PREDNISOLONE ACETATE
     Indication: UVEITIS
     Dosage: 2 GTT, QAM
     Route: 047

REACTIONS (5)
  - Hydrocephalus [Unknown]
  - Uterine polyp [Unknown]
  - Ocular discomfort [Recovered/Resolved]
  - Off label use [Unknown]
  - Inappropriate schedule of product administration [Unknown]

NARRATIVE: CASE EVENT DATE: 2017
